FAERS Safety Report 6288190-X (Version None)
Quarter: 2009Q3

REPORT INFORMATION
  Report Type: 
  Country: None (occurrence: None)
  Receive Date: 20090729
  Receipt Date: 20090717
  Transmission Date: 20100115
  Serious: Yes (Hospitalization)
  Sender: FDA-Public Use
  Company Number: CH-BAYER-200926255GPV

PATIENT
  Age: 32 Year
  Sex: Female

DRUGS (1)
  1. YASMIN [Suspect]
     Indication: DRUG USE FOR UNKNOWN INDICATION
     Route: 048
     Dates: start: 20080901, end: 20090224

REACTIONS (5)
  - CHEST PAIN [None]
  - HAEMOPTYSIS [None]
  - PNEUMONIA [None]
  - PULMONARY EMBOLISM [None]
  - THROMBOCYTOPENIA [None]
